FAERS Safety Report 4995832-5 (Version None)
Quarter: 2006Q1

REPORT INFORMATION
  Report Type: 
  Country: None (occurrence: None)
  Receive Date: 20060315
  Receipt Date: 20051121
  Transmission Date: 20060701
  Serious: Yes (Other)
  Sender: FDA-Public Use
  Company Number: 425813

PATIENT
  Age: 64 Year
  Sex: Female
  Weight: 66.7 kg

DRUGS (5)
  1. BONIVA [Suspect]
     Indication: OSTEOPOROSIS
     Dosage: 1 PER MONTH ORAL
     Route: 048
     Dates: start: 20050715, end: 20051101
  2. CLIMARA [Concomitant]
  3. CALCIUM SUPPLEMENT (CALCIUM) [Concomitant]
  4. VITAMIN E (ALPHA-TOCOPHEROL) [Concomitant]
  5. VITAMIN (VITAMIN NOS) [Concomitant]

REACTIONS (2)
  - DYSPEPSIA [None]
  - TRIGEMINAL NEURALGIA [None]
